FAERS Safety Report 10045963 (Version 2)
Quarter: 2014Q1

REPORT INFORMATION
  Report Type: Spontaneous
  Country: US (occurrence: US)
  Receive Date: 20140330
  Receipt Date: 20140330
  Transmission Date: 20141002
  Serious: Yes (Disabling)
  Sender: FDA-Public Use
  Company Number: US-GE HEALTHCARE MEDICAL DIAGNOSTICS-OSCN-PR-1005S-0131

PATIENT
  Age: 74 Year
  Sex: Male

DRUGS (10)
  1. GADOLINIUM (UNSPECIFIED) [Suspect]
     Indication: PRODUCT USED FOR UNKNOWN INDICATION
     Route: 042
     Dates: start: 20040427, end: 20040427
  2. GADOLINIUM (UNSPECIFIED) [Suspect]
     Indication: INFECTION
     Route: 042
     Dates: start: 20040601, end: 20040601
  3. GADOLINIUM (UNSPECIFIED) [Suspect]
     Indication: BACK PAIN
     Route: 042
     Dates: start: 20040401, end: 20040401
  4. MAGNEVIST [Suspect]
     Indication: VEIN DISORDER
     Route: 042
     Dates: start: 20040427, end: 20040427
  5. MAGNEVIST [Suspect]
     Route: 042
     Dates: start: 20070427, end: 20070427
  6. OPTIMARK [Suspect]
     Indication: NEPHRECTOMY
     Route: 042
     Dates: start: 20030206, end: 20030206
  7. OPTIMARK [Suspect]
     Indication: RENAL CANCER
     Route: 042
     Dates: start: 20030724, end: 20030724
  8. OPTIMARK [Suspect]
     Indication: PROSTATE CANCER
     Route: 042
     Dates: start: 20030329, end: 20030329
  9. OPTIMARK [Suspect]
     Indication: RENAL FAILURE ACUTE
  10. OPTIMARK [Suspect]
     Indication: OSTEOMYELITIS

REACTIONS (1)
  - Nephrogenic systemic fibrosis [Not Recovered/Not Resolved]
